FAERS Safety Report 12727486 (Version 7)
Quarter: 2017Q2

REPORT INFORMATION
  Report Type: Spontaneous
  Country: US (occurrence: US)
  Receive Date: 20160909
  Receipt Date: 20170516
  Transmission Date: 20170830
  Serious: Yes (Congenital Anomaly, Other)
  Sender: FDA-Public Use
  Company Number: PHHY2015US133296

PATIENT
  Sex: Male

DRUGS (1)
  1. ZOFRAN [Suspect]
     Active Substance: ONDANSETRON HYDROCHLORIDE
     Indication: FOETAL EXPOSURE DURING PREGNANCY
     Dosage: UNK
     Route: 064

REACTIONS (30)
  - Ureteral disorder [Not Recovered/Not Resolved]
  - Developmental delay [Not Recovered/Not Resolved]
  - Gastrooesophageal reflux disease [Unknown]
  - Polydactyly [Not Recovered/Not Resolved]
  - Ankyloglossia congenital [Unknown]
  - Hydronephrosis [Unknown]
  - Seizure [Not Recovered/Not Resolved]
  - Adenoidal hypertrophy [Unknown]
  - Intellectual disability [Unknown]
  - Scoliosis [Unknown]
  - Joint dislocation [Unknown]
  - Kidney enlargement [Not Recovered/Not Resolved]
  - Pain [Unknown]
  - Tympanic membrane perforation [Unknown]
  - Cerumen impaction [Unknown]
  - Encephalopathy [Unknown]
  - Apnoea [Unknown]
  - Myoclonic epilepsy [Unknown]
  - Disturbance in attention [Unknown]
  - Anhedonia [Unknown]
  - Hypotonia [Unknown]
  - Anxiety [Unknown]
  - Congenital umbilical hernia [Unknown]
  - Renal disorder [Unknown]
  - Speech disorder [Not Recovered/Not Resolved]
  - High arched palate [Not Recovered/Not Resolved]
  - Foetal exposure during pregnancy [Unknown]
  - Asthenia [Unknown]
  - Cytogenetic abnormality [Not Recovered/Not Resolved]
  - Glaucoma [Not Recovered/Not Resolved]
